FAERS Safety Report 20752678 (Version 1)
Quarter: 2022Q2

REPORT INFORMATION
  Report Type: Spontaneous
  Country: US (occurrence: None)
  Receive Date: 20220426
  Receipt Date: 20220426
  Transmission Date: 20220720
  Serious: No
  Sender: FDA-Public Use
  Company Number: US-ROCHE-2863672

PATIENT
  Sex: Female

DRUGS (17)
  1. ESBRIET [Suspect]
     Active Substance: PIRFENIDONE
     Indication: Idiopathic pulmonary fibrosis
     Dosage: TAKE 3 TABLETS BY MOUTH 3 TIMES A DAY
     Route: 048
  2. AMLODIPINE [Concomitant]
     Active Substance: AMLODIPINE BESYLATE
  3. ASPIRIN [Concomitant]
     Active Substance: ASPIRIN
  4. BIOTIN [Concomitant]
     Active Substance: BIOTIN
  5. COLACE [Concomitant]
     Active Substance: DOCUSATE SODIUM
  6. FAMOTIDINE [Concomitant]
     Active Substance: FAMOTIDINE
  7. FISH OIL [Concomitant]
     Active Substance: FISH OIL
  8. FLUTICASONE [Concomitant]
     Active Substance: FLUTICASONE
  9. GABAPENTIN [Concomitant]
     Active Substance: GABAPENTIN
  10. GARLIC [Concomitant]
     Active Substance: GARLIC
  11. IPRATROPIUM [Concomitant]
     Active Substance: IPRATROPIUM
  12. PREDNISONE [Concomitant]
     Active Substance: PREDNISONE
  13. ROPINIROLE [Concomitant]
     Active Substance: ROPINIROLE
  14. SINGULAIR [Concomitant]
     Active Substance: MONTELUKAST SODIUM
  15. TOVIAZ [Concomitant]
     Active Substance: FESOTERODINE FUMARATE
  16. TRELEGY ELLIPTA [Concomitant]
     Active Substance: FLUTICASONE FUROATE\UMECLIDINIUM BROMIDE\VILANTEROL TRIFENATATE
  17. ZYRTEC [Concomitant]
     Active Substance: CETIRIZINE HYDROCHLORIDE

REACTIONS (1)
  - Therapeutic product effect decreased [Unknown]
